FAERS Safety Report 8719612 (Version 2)
Quarter: 2012Q4

REPORT INFORMATION
  Report Type: Report from Study
  Country: US (occurrence: US)
  Receive Date: 20120813
  Receipt Date: 20121008
  Transmission Date: 20130627
  Serious: Yes (Other)
  Sender: FDA-Public Use
  Company Number: US-JNJFOC-20120803491

PATIENT
  Age: 63 None
  Sex: Male
  Weight: 89.81 kg

DRUGS (10)
  1. REMICADE [Suspect]
     Indication: COLITIS
     Route: 042
     Dates: start: 20120716
  2. REMICADE [Suspect]
     Indication: COLITIS ULCERATIVE
     Route: 042
     Dates: start: 20120716
  3. ASACOL HD [Concomitant]
     Indication: COLITIS ULCERATIVE
     Route: 048
  4. ASACOL HD [Concomitant]
     Indication: COLITIS ULCERATIVE
     Route: 048
     Dates: start: 2012, end: 201208
  5. AMLODIPINE [Concomitant]
     Indication: HYPERTENSION
     Route: 048
     Dates: start: 2011
  6. ATORVASTATIN [Concomitant]
     Indication: BLOOD CHOLESTEROL
     Route: 048
  7. TAMSULOSIN [Concomitant]
     Indication: DYSURIA
     Route: 048
     Dates: start: 2012
  8. HYOSCYAMINE [Concomitant]
     Indication: MUSCLE SPASMS
     Route: 048
     Dates: start: 1990
  9. FLOMAX [Concomitant]
     Indication: BLADDER DISORDER
     Route: 048
     Dates: start: 2012
  10. LOSARTAN [Concomitant]
     Indication: BLOOD PRESSURE
     Route: 065
     Dates: start: 201207

REACTIONS (3)
  - Bladder cancer [Recovered/Resolved]
  - Malaise [Recovered/Resolved]
  - Therapeutic response delayed [Recovered/Resolved]
